FAERS Safety Report 10753646 (Version 2)
Quarter: 2015Q1

REPORT INFORMATION
  Report Type: Spontaneous
  Country: JP (occurrence: None)
  Receive Date: 20150129
  Receipt Date: 20150224
  Transmission Date: 20150721
  Serious: Yes (Death, Hospitalization)
  Sender: FDA-Public Use
  Company Number: 2014FE03551

PATIENT
  Age: 81 Year
  Sex: Male
  Weight: 59 kg

DRUGS (3)
  1. NELBIS (METFORMIN HYDROCHLORIDE) TABLET [Concomitant]
  2. GEMZAR [Suspect]
     Active Substance: GEMCITABINE HYDROCHLORIDE
     Indication: BLADDER CANCER
     Route: 042
     Dates: start: 20130718, end: 20130829
  3. GONAX (DEGARELIX) POWDER AND SOLVENT FOR SOLUTION FOR INJECTION, 80MG [Suspect]
     Active Substance: DEGARELIX
     Indication: PROSTATE CANCER
     Dosage: UNK MG, MONTHLY, SUBCUTANEOUS
     Route: 058
     Dates: start: 20130805, end: 20130902

REACTIONS (4)
  - Urine output decreased [None]
  - Pneumonia [None]
  - Respiratory arrest [None]
  - Interstitial lung disease [None]

NARRATIVE: CASE EVENT DATE: 20130907
